FAERS Safety Report 14230678 (Version 3)
Quarter: 2018Q1

REPORT INFORMATION
  Report Type: Spontaneous
  Country: CO (occurrence: CO)
  Receive Date: 20171128
  Receipt Date: 20180104
  Transmission Date: 20180508
  Serious: Yes (Hospitalization)
  Sender: FDA-Public Use
  Company Number: CO-GE HEALTHCARE LIFE SCIENCES-2017CSU003882

PATIENT

DRUGS (1)
  1. OMNIPAQUE [Suspect]
     Active Substance: IOHEXOL
     Indication: PRODUCT USED FOR UNKNOWN INDICATION
     Dosage: UNK, SINGLE
     Route: 042
     Dates: start: 20171118, end: 20171118

REACTIONS (6)
  - Oxygen saturation decreased [Unknown]
  - Tachypnoea [Unknown]
  - Tremor [Unknown]
  - Pyrexia [Unknown]
  - Chills [Unknown]
  - Use of accessory respiratory muscles [Unknown]

NARRATIVE: CASE EVENT DATE: 20171118
